FAERS Safety Report 8387715 (Version 5)
Quarter: 2013Q1

REPORT INFORMATION
  Report Type: Spontaneous
  Country: US (occurrence: US)
  Receive Date: 20120203
  Receipt Date: 20130307
  Transmission Date: 20140127
  Serious: No
  Sender: FDA-Public Use
  Company Number: US-PFIZER INC-2012025827

PATIENT
  Age: 49 Year
  Sex: Female
  Weight: 78 kg

DRUGS (8)
  1. LYRICA [Suspect]
     Indication: FIBROMYALGIA
     Dosage: 150 MG, 3X/DAY
     Route: 048
     Dates: start: 2009, end: 201211
  2. LYRICA [Suspect]
     Dosage: 150 MG, 2X/DAY
     Route: 048
     Dates: start: 201211
  3. TRAZODONE HCL [Suspect]
     Indication: SLEEP DISORDER
     Dosage: 50 MG,DAILY
  4. XANAX [Suspect]
     Indication: PANIC ATTACK
     Dosage: UNK, 1X/DAY
     Route: 048
  5. XANAX [Suspect]
     Indication: NERVOUS SYSTEM DISORDER
  6. AMITRIPTYLINE [Suspect]
     Indication: NASAL SEPTAL OPERATION
     Dosage: 50 MG, DAILY
  7. SOMA [Concomitant]
     Dosage: UNK
  8. AMBIEN [Concomitant]
     Dosage: UNK

REACTIONS (15)
  - Pain [Not Recovered/Not Resolved]
  - Malaise [Unknown]
  - Heart rate increased [Unknown]
  - Blood pressure increased [Unknown]
  - Dehydration [Unknown]
  - Vitamin D decreased [Unknown]
  - Pyrexia [Unknown]
  - Drug effect incomplete [Unknown]
  - Intentional drug misuse [Unknown]
  - Fibromyalgia [Unknown]
  - Emotional disorder [Unknown]
  - Insomnia [Unknown]
  - Drug ineffective [Unknown]
  - Therapeutic response unexpected [Unknown]
  - Pre-existing condition improved [Unknown]
